FAERS Safety Report 9723063 (Version 1)
Quarter: 2013Q4

REPORT INFORMATION
  Report Type: Spontaneous
  Country: US (occurrence: None)
  Receive Date: 20131126
  Receipt Date: 20131126
  Transmission Date: 20140711
  Serious: Yes (Life-Threatening, Hospitalization)
  Sender: FDA-Public Use
  Company Number: 2013HINLIT0247

PATIENT
  Age: 68 Year
  Sex: Female

DRUGS (2)
  1. HYDRALAZINE [Suspect]
     Indication: HYPERTENSION
  2. COUMADIN (COUMADIN) [Concomitant]

REACTIONS (5)
  - Systemic lupus erythematosus [None]
  - Pericardial effusion [None]
  - Atrial fibrillation [None]
  - C-reactive protein increased [None]
  - Sinus tachycardia [None]
